FAERS Safety Report 21326684 (Version 1)
Quarter: 2022Q3

REPORT INFORMATION
  Report Type: Spontaneous
  Country: US (occurrence: US)
  Receive Date: 20220913
  Receipt Date: 20220913
  Transmission Date: 20221026
  Serious: Yes (Life-Threatening, Hospitalization, Other)
  Sender: FDA-Public Use
  Company Number: US-SUN PHARMACEUTICAL INDUSTRIES LTD-2022R1-354329

PATIENT
  Age: 42 Year
  Sex: Male

DRUGS (3)
  1. CLOZAPINE [Suspect]
     Active Substance: CLOZAPINE
     Indication: Psychotic symptom
     Dosage: 12.5 MILLIGRAM, AT BEDTIME
     Route: 065
  2. LITHIUM [Suspect]
     Active Substance: LITHIUM
     Indication: Psychotic symptom
     Dosage: 900 MILLIGRAM, BID
     Route: 065
  3. FLUPHENAZINE DECANOATE [Suspect]
     Active Substance: FLUPHENAZINE DECANOATE
     Indication: Psychotic symptom
     Dosage: 37.5 MILLIGRAM, EVERY 2 WEEKS
     Route: 030

REACTIONS (3)
  - Neuroleptic malignant syndrome [Unknown]
  - Toxicity to various agents [Unknown]
  - Diabetes insipidus [Unknown]
